FAERS Safety Report 24435276 (Version 1)
Quarter: 2024Q4

REPORT INFORMATION
  Report Type: Report from Study
  Country: JP (occurrence: JP)
  Receive Date: 20241015
  Receipt Date: 20241015
  Transmission Date: 20250115
  Serious: Yes (Other)
  Sender: AMGEN
  Company Number: JP-KISSEI-TV20240796_P_1

PATIENT
  Age: 75 Year
  Sex: Male
  Weight: 52.3 kg

DRUGS (27)
  1. AVACOPAN [Suspect]
     Active Substance: AVACOPAN
     Indication: Microscopic polyangiitis
     Dosage: 30 MILLIGRAM, Q12H
     Route: 048
     Dates: start: 20230920
  2. PREDNISOLONE [Suspect]
     Active Substance: PREDNISOLONE
     Indication: Microscopic polyangiitis
     Dosage: 30 MILLIGRAM, QD
     Route: 048
  3. PREDNISOLONE [Suspect]
     Active Substance: PREDNISOLONE
     Indication: Herpes zoster oticus
     Dosage: 25 MILLIGRAM, QD
     Route: 048
     Dates: end: 20230926
  4. PREDNISOLONE [Suspect]
     Active Substance: PREDNISOLONE
     Dosage: 20 MILLIGRAM, QD
     Route: 048
     Dates: start: 20230927, end: 20231003
  5. PREDNISOLONE [Suspect]
     Active Substance: PREDNISOLONE
     Dosage: 15 MILLIGRAM, QD
     Route: 048
     Dates: start: 20231004, end: 20231017
  6. PREDNISOLONE [Suspect]
     Active Substance: PREDNISOLONE
     Dosage: 12.5 MILLIGRAM, QD
     Route: 048
     Dates: start: 20231018, end: 20231025
  7. PREDNISOLONE [Suspect]
     Active Substance: PREDNISOLONE
     Dosage: 10 MILLIGRAM, QD
     Route: 048
     Dates: start: 20231026, end: 20231108
  8. PREDNISOLONE [Suspect]
     Active Substance: PREDNISOLONE
     Dosage: 7.5 MILLIGRAM, QD
     Route: 048
     Dates: start: 20231109, end: 20231220
  9. PREDNISOLONE [Suspect]
     Active Substance: PREDNISOLONE
     Dosage: 6 MILLIGRAM, QD
     Route: 048
     Dates: start: 20231221, end: 20240201
  10. PREDNISOLONE [Suspect]
     Active Substance: PREDNISOLONE
     Dosage: 30 MILLIGRAM, QD
     Route: 048
     Dates: start: 20240202, end: 20240204
  11. PREDNISOLONE [Suspect]
     Active Substance: PREDNISOLONE
     Dosage: 20 MILLIGRAM, QD
     Route: 048
     Dates: start: 20240205, end: 20240207
  12. PREDNISOLONE [Suspect]
     Active Substance: PREDNISOLONE
     Dosage: 10 MILLIGRAM, QD
     Route: 048
     Dates: start: 20240208, end: 20240210
  13. PREDNISOLONE [Suspect]
     Active Substance: PREDNISOLONE
     Dosage: 6 MILLIGRAM, QD
     Route: 048
     Dates: start: 20240211, end: 20240320
  14. PREDNISOLONE [Suspect]
     Active Substance: PREDNISOLONE
     Dosage: 5 MILLIGRAM, QD
     Route: 048
     Dates: start: 20240321
  15. RITUXIMAB [Concomitant]
     Active Substance: RITUXIMAB
     Indication: Microscopic polyangiitis
     Dosage: UNK
     Route: 040
  16. RITUXIMAB [Concomitant]
     Active Substance: RITUXIMAB
     Dosage: 600 MILLIGRAM
     Route: 040
     Dates: start: 20231003, end: 20231003
  17. RITUXIMAB [Concomitant]
     Active Substance: RITUXIMAB
     Dosage: 600 MILLIGRAM
     Route: 040
     Dates: start: 20240321, end: 20240321
  18. SULFAMETHOXAZOLE\TRIMETHOPRIM [Concomitant]
     Active Substance: SULFAMETHOXAZOLE\TRIMETHOPRIM
     Indication: Antifungal prophylaxis
     Dosage: 1 MILLIGRAM, QWK
     Route: 048
  19. URSODIOL [Concomitant]
     Active Substance: URSODIOL
     Indication: Product used for unknown indication
     Dosage: UNK
     Route: 048
  20. AMLODIPINE [Concomitant]
     Active Substance: AMLODIPINE BESYLATE
     Indication: Product used for unknown indication
     Dosage: UNK
     Route: 048
  21. ALFACALCIDOL [Concomitant]
     Active Substance: ALFACALCIDOL
     Indication: Product used for unknown indication
     Dosage: UNK
     Route: 048
     Dates: start: 20231026
  22. PRASUGREL HYDROCHLORIDE [Concomitant]
     Active Substance: PRASUGREL HYDROCHLORIDE
     Indication: Product used for unknown indication
     Dosage: UNK
     Route: 048
  23. VONOPRAZAN FUMARATE [Concomitant]
     Active Substance: VONOPRAZAN FUMARATE
     Indication: Product used for unknown indication
     Dosage: UNK
     Route: 048
  24. FEBUXOSTAT [Concomitant]
     Active Substance: FEBUXOSTAT
     Indication: Product used for unknown indication
     Dosage: UNK
     Route: 048
  25. CARVEDILOL [Concomitant]
     Active Substance: CARVEDILOL
     Route: 048
  26. EZETIMIBE [Concomitant]
     Active Substance: EZETIMIBE
     Indication: Product used for unknown indication
     Dosage: UNK
     Route: 048
  27. ROSUVASTATIN [Concomitant]
     Active Substance: ROSUVASTATIN
     Route: 048

REACTIONS (2)
  - Herpes zoster oticus [Recovered/Resolved]
  - Cytomegalovirus test positive [Recovered/Resolved]

NARRATIVE: CASE EVENT DATE: 20231002
